FAERS Safety Report 11427374 (Version 3)
Quarter: 2020Q4

REPORT INFORMATION
  Report Type: Spontaneous
  Country: US (occurrence: US)
  Receive Date: 20150827
  Receipt Date: 20201218
  Transmission Date: 20210113
  Serious: No
  Sender: FDA-Public Use
  Company Number: US-SA-2015SA087397

PATIENT

DRUGS (26)
  1. LIDOCAINE/PRILOCAINE [Concomitant]
     Active Substance: LIDOCAINE\PRILOCAINE
     Dosage: 2.5 %
     Dates: start: 20131023
  2. EPIPEN [Concomitant]
     Active Substance: EPINEPHRINE
     Indication: ANAPHYLACTIC REACTION
     Dosage: 0.3 MG, PRN
     Route: 042
     Dates: start: 20131023
  3. SALBUTAMOL [Concomitant]
     Active Substance: ALBUTEROL
     Dosage: 1 DF, PRN
     Dates: start: 20140319
  4. OMEPRAZOLE. [Concomitant]
     Active Substance: OMEPRAZOLE
  5. HEPARIN [Concomitant]
     Active Substance: HEPARIN SODIUM
  6. NEXPLANON [Concomitant]
     Active Substance: ETONOGESTREL
  7. LEVOCETIRIZINE [Concomitant]
     Active Substance: LEVOCETIRIZINE
  8. FABRAZYME [Suspect]
     Active Substance: AGALSIDASE BETA
     Indication: FABRY^S DISEASE
     Dosage: 0.975 MG/KG (100 MG), QOW
     Route: 042
     Dates: start: 20130930
  9. AMITRIPTYLINE HYDROCHLORIDE. [Concomitant]
     Active Substance: AMITRIPTYLINE HYDROCHLORIDE
     Dosage: 30 MG, HS
     Route: 048
     Dates: start: 20140902
  10. BUPROPION. [Concomitant]
     Active Substance: BUPROPION
     Dosage: 1 DF, BID
     Route: 048
     Dates: start: 20140319
  11. LMX4 [Concomitant]
     Active Substance: LIDOCAINE
  12. DULOXETINE. [Concomitant]
     Active Substance: DULOXETINE
  13. CLONAZEPAM. [Concomitant]
     Active Substance: CLONAZEPAM
  14. CATHFLO ACTIVASE [Concomitant]
     Active Substance: ALTEPLASE
     Dosage: 2 MG
     Route: 042
     Dates: start: 20131023
  15. EPINEPHRINE. [Concomitant]
     Active Substance: EPINEPHRINE
  16. TOPIRAMATE. [Concomitant]
     Active Substance: TOPIRAMATE
  17. RIZATRIPTAN. [Concomitant]
     Active Substance: RIZATRIPTAN
  18. NORMAL SALINE [Concomitant]
     Active Substance: SODIUM CHLORIDE
     Indication: MEDICATION DILUTION
     Dosage: 0.9 %
     Route: 042
     Dates: start: 20131023
  19. CEFDINIR. [Concomitant]
     Active Substance: CEFDINIR
     Dosage: 600 MG,QD
     Route: 048
     Dates: start: 20150601
  20. MELOXICAM. [Concomitant]
     Active Substance: MELOXICAM
     Dosage: 1 DF,QD
     Route: 048
     Dates: start: 20140319
  21. FABRAZYME [Suspect]
     Active Substance: AGALSIDASE BETA
     Indication: LIPIDOSIS
     Dosage: 0.67 MG/KG, QOW
     Route: 041
     Dates: start: 20131023
  22. ACETAMINOPHEN. [Concomitant]
     Active Substance: ACETAMINOPHEN
     Dosage: 325 MG
     Route: 048
     Dates: start: 20131023
  23. WATER FOR INJECTION [Concomitant]
     Active Substance: WATER
  24. DIPHENHYDRAMINE. [Concomitant]
     Active Substance: DIPHENHYDRAMINE
     Indication: ANAPHYLACTIC REACTION
     Dosage: 25 MG,PRN
     Route: 048
     Dates: start: 20131023
  25. RHOFADE [Concomitant]
     Active Substance: OXYMETAZOLINE HYDROCHLORIDE
  26. ZOFRAN [Concomitant]
     Active Substance: ONDANSETRON HYDROCHLORIDE

REACTIONS (2)
  - Urinary tract infection [Recovered/Resolved]
  - Diarrhoea [Unknown]
